FAERS Safety Report 4347937-X (Version None)
Quarter: 2004Q1

REPORT INFORMATION
  Report Type: 
  Country: None (occurrence: None)
  Receive Date: 20040325
  Receipt Date: 20031118
  Transmission Date: 20041129
  Serious: No
  Sender: FDA-Public Use
  Company Number: USA031152903

PATIENT
  Age: 84 Year
  Sex: Female
  Weight: 54 kg

DRUGS (5)
  1. FORTEO [Suspect]
     Indication: OSTEOPOROSIS
     Dates: start: 20031001
  2. CALCIUM [Concomitant]
  3. VIOXX [Concomitant]
  4. ZOCOR [Concomitant]
  5. SYNTHROID [Concomitant]

REACTIONS (1)
  - HYPOTENSION [None]
